FAERS Safety Report 8587031-5 (Version None)
Quarter: 2012Q3

REPORT INFORMATION
  Report Type: 
  Country: None (occurrence: None)
  Receive Date: 20120810
  Receipt Date: 20120808
  Transmission Date: 20120928
  Serious: Yes (Hospitalization)
  Sender: FDA-Public Use
  Company Number: CA-009507513-1208CAN004396

PATIENT

DRUGS (2)
  1. PEGETRON [Suspect]
     Indication: HEPATITIS C
     Dosage: 200 MICROGRAM, UNK
     Route: 058
     Dates: start: 20120401, end: 20120801
  2. VICTRELIS [Suspect]
     Indication: HEPATITIS C
     Dosage: 200 MG, UNK
     Dates: start: 20120401, end: 20120801

REACTIONS (1)
  - POSTOPERATIVE WOUND INFECTION [None]
